FAERS Safety Report 7033873-7 (Version None)
Quarter: 2010Q4

REPORT INFORMATION
  Report Type: 
  Country: None (occurrence: None)
  Receive Date: 20101007
  Receipt Date: 20100930
  Transmission Date: 20110411
  Serious: Yes (Other)
  Sender: FDA-Public Use
  Company Number: US-AMGEN-KDC432579

PATIENT
  Sex: Female

DRUGS (5)
  1. DENOSUMAB [Suspect]
     Indication: METASTASES TO BONE
     Route: 058
     Dates: start: 20070802
  2. TAXOL [Concomitant]
     Dates: start: 20100219
  3. CALCIUM [Concomitant]
     Route: 048
     Dates: start: 20100802
  4. VITAMIN D [Concomitant]
     Route: 048
     Dates: start: 20100802
  5. XANAX [Concomitant]
     Dates: start: 20071025

REACTIONS (1)
  - OSTEONECROSIS OF JAW [None]
